FAERS Safety Report 7422901-2 (Version None)
Quarter: 2011Q1

REPORT INFORMATION
  Report Type: 
  Country: None (occurrence: None)
  Receive Date: 20110330
  Receipt Date: 20110318
  Transmission Date: 20110831
  Serious: Yes (Hospitalization)
  Sender: FDA-Public Use
  Company Number: 2011027671

PATIENT
  Age: 55 Year
  Sex: Female

DRUGS (2)
  1. VIVAGLOBIN [Suspect]
     Indication: CHRONIC INFLAMMATORY DEMYELINATING POLYRADICULONEUROPATHY
     Dosage: 100 ML, SUBCUTANEOUS; 16 G 1X/WEEK, SUBCUTANEOUS
     Route: 058
     Dates: start: 20101027
  2. VIVAGLOBIN [Suspect]
     Indication: CHRONIC INFLAMMATORY DEMYELINATING POLYRADICULONEUROPATHY
     Dosage: 100 ML, SUBCUTANEOUS; 16 G 1X/WEEK, SUBCUTANEOUS
     Route: 058
     Dates: start: 20110213, end: 20110213

REACTIONS (3)
  - RENAL EMBOLISM [None]
  - CEREBROVASCULAR ACCIDENT [None]
  - SPLENIC EMBOLISM [None]
